FAERS Safety Report 7488853-4 (Version None)
Quarter: 2011Q2

REPORT INFORMATION
  Report Type: 
  Country: None (occurrence: None)
  Receive Date: 20110511
  Receipt Date: 20110426
  Transmission Date: 20111010
  Serious: Yes (Life-Threatening, Hospitalization)
  Sender: FDA-Public Use
  Company Number: GER/USA/11/0018171

PATIENT
  Age: 60 Year
  Sex: Female

DRUGS (4)
  1. AMLODIPINE [Suspect]
     Indication: PRODUCT USED FOR UNKNOWN INDICATION
     Dosage: 10 MG, 2 IN 1 D, ORAL
     Route: 048
  2. ACETYLSALICYLIC ACID (ACETYLSALICYLIC ACID) [Concomitant]
  3. NIFEDIPINE [Concomitant]
  4. METOPROLOL TARTRATE [Concomitant]

REACTIONS (6)
  - RESPIRATORY FAILURE [None]
  - SHOCK [None]
  - TOXICITY TO VARIOUS AGENTS [None]
  - LACTIC ACIDOSIS [None]
  - ACCIDENTAL OVERDOSE [None]
  - ILEUS PARALYTIC [None]
